FAERS Safety Report 9178767 (Version 1)
Quarter: 2013Q1

REPORT INFORMATION
  Report Type: Spontaneous
  Country: US (occurrence: US)
  Receive Date: 20130321
  Receipt Date: 20130321
  Transmission Date: 20140127
  Serious: Yes (Other)
  Sender: FDA-Public Use
  Company Number: US-ROCHE-1181169

PATIENT
  Age: 14 Year
  Sex: Male
  Weight: 78.09 kg

DRUGS (2)
  1. ACCUTANE [Suspect]
     Indication: ACNE
     Route: 065
     Dates: start: 199805, end: 199810
  2. ACCUTANE [Suspect]
     Route: 065
     Dates: end: 1999

REACTIONS (11)
  - Crohn^s disease [Unknown]
  - Inflammatory bowel disease [Unknown]
  - Colitis ulcerative [Unknown]
  - Emotional distress [Unknown]
  - Depression [Unknown]
  - Suicidal ideation [Unknown]
  - Anal fissure [Unknown]
  - Anal abscess [Unknown]
  - Anal fistula [Unknown]
  - Dry skin [Unknown]
  - Lip dry [Unknown]
